FAERS Safety Report 9312854 (Version 1)
Quarter: 2013Q2

REPORT INFORMATION
  Report Type: Report from Study
  Country: PT (occurrence: PT)
  Receive Date: 20130528
  Receipt Date: 20130528
  Transmission Date: 20140414
  Serious: Yes (Other)
  Sender: FDA-Public Use
  Company Number: PT-GENZYME-CAMP-1002914

PATIENT
  Age: 50 Year
  Sex: Male
  Weight: 75 kg

DRUGS (13)
  1. CAMPATH [Suspect]
     Indication: MYCOSIS FUNGOIDES
     Dosage: 30 MG SQ, 3X/W
     Route: 058
     Dates: start: 20100629, end: 20100808
  2. FLUDARA [Suspect]
     Indication: MYCOSIS FUNGOIDES
     Dosage: UNK
     Route: 065
  3. CYCLOPHOSPHAMIDE [Suspect]
     Indication: MYCOSIS FUNGOIDES
     Dosage: UNK
     Route: 065
  4. DOXORUBICIN [Suspect]
     Indication: MYCOSIS FUNGOIDES
     Dosage: UNK
     Route: 065
  5. ONCOVIN [Suspect]
     Indication: MYCOSIS FUNGOIDES
     Dosage: UNK
     Route: 065
  6. PREDNISONE [Suspect]
     Indication: MYCOSIS FUNGOIDES
     Dosage: UNK
     Route: 065
  7. GEMCITABINE [Suspect]
     Indication: MYCOSIS FUNGOIDES
     Dosage: UNK
     Route: 065
  8. BORTEZOMIB [Suspect]
     Indication: MYCOSIS FUNGOIDES
     Dosage: UNK
     Route: 065
  9. CORTICOSTEROID NOS [Suspect]
     Indication: MYCOSIS FUNGOIDES
     Dosage: UNK
     Route: 065
  10. METHOTREXAT [Suspect]
     Indication: MYCOSIS FUNGOIDES
     Dosage: UNK
     Route: 065
  11. ALLOPURINOL [Concomitant]
     Indication: PRODUCT USED FOR UNKNOWN INDICATION
     Dosage: 300 MG, QD
     Route: 065
  12. PREDNISOLONE [Concomitant]
     Indication: PRODUCT USED FOR UNKNOWN INDICATION
     Dosage: 40 M,G DAILY
     Route: 065
  13. OMEPRAZOLE [Concomitant]
     Indication: PRODUCT USED FOR UNKNOWN INDICATION
     Dosage: 20 MG, QD
     Route: 065

REACTIONS (2)
  - Disease progression [Unknown]
  - Off label use [Unknown]
